FAERS Safety Report 25010084 (Version 5)
Quarter: 2025Q1

REPORT INFORMATION
  Report Type: Report from Study
  Country: CN (occurrence: CN)
  Receive Date: 20250225
  Receipt Date: 20250326
  Transmission Date: 20250408
  Serious: Yes (Other)
  Sender: AMGEN
  Company Number: CN-AMGEN-CHNNI2025029221

PATIENT
  Age: 77 Year
  Sex: Male
  Weight: 77 kg

DRUGS (42)
  1. DENOSUMAB [Suspect]
     Active Substance: DENOSUMAB
     Indication: Bone cancer metastatic
     Dosage: 120 MILLIGRAM, Q4WK
     Route: 058
     Dates: start: 20241121
  2. FILGRASTIM [Concomitant]
     Active Substance: FILGRASTIM
     Route: 058
     Dates: start: 20241122, end: 20241123
  3. BEVACIZUMAB [Concomitant]
     Active Substance: BEVACIZUMAB
     Route: 042
     Dates: start: 20241219, end: 20241219
  4. LEUCOGEN [Concomitant]
     Active Substance: LEUCOGEN
     Route: 048
     Dates: start: 20241122, end: 202412
  5. Yang zheng [Concomitant]
     Route: 048
     Dates: start: 20241208, end: 20241225
  6. CAMRELIZUMAB [Concomitant]
     Active Substance: CAMRELIZUMAB
     Route: 042
     Dates: start: 20241219, end: 20241219
  7. CARBOPLATIN [Concomitant]
     Active Substance: CARBOPLATIN
     Route: 042
     Dates: start: 20241220, end: 20241220
  8. PACLITAXEL [Concomitant]
     Active Substance: PACLITAXEL
     Route: 042
     Dates: start: 20241220, end: 20241220
  9. BROMHEXINE HYDROCHLORIDE [Concomitant]
     Active Substance: BROMHEXINE HYDROCHLORIDE
     Route: 040
     Dates: start: 20241208, end: 20241211
  10. OXYGEN [Concomitant]
     Active Substance: OXYGEN
     Route: 050
     Dates: start: 20241208, end: 20241211
  11. ALBUTEROL SULFATE [Concomitant]
     Active Substance: ALBUTEROL SULFATE
     Route: 050
     Dates: start: 20241208, end: 20241211
  12. MEGESTROL ACETATE [Concomitant]
     Active Substance: MEGESTROL ACETATE
     Route: 048
     Dates: start: 20241120, end: 202412
  13. CELECOXIB [Concomitant]
     Active Substance: CELECOXIB
     Route: 048
     Dates: start: 20241207, end: 20241222
  14. CEFTRIAXONE SODIUM [Concomitant]
     Active Substance: CEFTRIAXONE SODIUM
     Route: 042
     Dates: start: 20241208, end: 20241211
  15. Compound platycodon [Concomitant]
     Route: 048
     Dates: start: 20241210, end: 202501
  16. CEFUROXIME SODIUM [Concomitant]
     Active Substance: CEFUROXIME SODIUM
     Route: 042
     Dates: start: 20241211, end: 20241217
  17. FLURBIPROFEN [Concomitant]
     Active Substance: FLURBIPROFEN
     Route: 040
     Dates: start: 20241211, end: 20241217
  18. CISATRACURIUM [Concomitant]
     Active Substance: CISATRACURIUM
     Route: 040
     Dates: start: 20241211, end: 20241211
  19. ETOMIDATE [Concomitant]
     Active Substance: ETOMIDATE
     Route: 040
     Dates: start: 20241211, end: 20241211
  20. DEXTROSE [Concomitant]
     Active Substance: DEXTROSE MONOHYDRATE
     Route: 042
     Dates: start: 20241211, end: 20241211
  21. MIDAZOLAM [Concomitant]
     Active Substance: MIDAZOLAM
     Route: 042
     Dates: start: 20241211, end: 20241211
  22. OMEPRAZOLE SODIUM [Concomitant]
     Active Substance: OMEPRAZOLE SODIUM
     Route: 042
     Dates: start: 20241211, end: 20241225
  23. PHENOBARBITAL SODIUM [Concomitant]
     Active Substance: PHENOBARBITAL SODIUM
     Route: 040
     Dates: start: 20241211, end: 20241211
  24. SCOPOLAMINE [Concomitant]
     Active Substance: SCOPOLAMINE
     Route: 040
     Dates: start: 20241211, end: 20241211
  25. SUFENTANIL CITRATE [Concomitant]
     Active Substance: SUFENTANIL CITRATE
     Route: 040
     Dates: start: 20241211, end: 20241211
  26. VITAMIN B6 [Concomitant]
     Active Substance: PYRIDOXINE HYDROCHLORIDE
     Route: 042
     Dates: start: 20241211, end: 20241220
  27. VITAMIN C [Concomitant]
     Active Substance: ASCORBIC ACID
     Route: 040
     Dates: start: 20241211, end: 20241220
  28. ESOMEPRAZOLE SODIUM [Concomitant]
     Active Substance: ESOMEPRAZOLE SODIUM
     Route: 042
     Dates: start: 20241212, end: 20241215
  29. FUROSEMIDE [Concomitant]
     Active Substance: FUROSEMIDE
     Route: 048
     Dates: start: 20241122, end: 202412
  30. AMINOPHYLLINE\CHLORPHENIRAMINE MALEATE\METHOXYPHENAMINE HYDROCHLORIDE\ [Concomitant]
     Active Substance: AMINOPHYLLINE\CHLORPHENIRAMINE MALEATE\METHOXYPHENAMINE HYDROCHLORIDE\NOSCAPINE
     Route: 048
     Dates: start: 20241207, end: 20241207
  31. CALCIUM CHLORIDE\POTASSIUM CHLORIDE\SODIUM CHLORIDE [Concomitant]
     Active Substance: CALCIUM CHLORIDE\POTASSIUM CHLORIDE\SODIUM CHLORIDE
     Route: 042
     Dates: start: 20241211, end: 20241211
  32. DEOXYEPINEPHRINE HYDROCHLORIDE [Concomitant]
     Active Substance: DEOXYEPINEPHRINE HYDROCHLORIDE
     Route: 042
     Dates: start: 20241211, end: 20241211
  33. HYDROCORTISONE [Concomitant]
     Active Substance: HYDROCORTISONE
     Route: 042
     Dates: start: 20241211, end: 20241211
  34. ONDANSETRON [Concomitant]
     Active Substance: ONDANSETRON
     Route: 048
     Dates: start: 20241211, end: 20241211
  35. PROPOFOL [Concomitant]
     Active Substance: PROPOFOL
     Route: 042
     Dates: start: 20241211, end: 20241211
  36. LORNOXICAM [Concomitant]
     Active Substance: LORNOXICAM
     Route: 042
     Dates: start: 20241212, end: 20241214
  37. INSULIN NOS [Concomitant]
     Active Substance: INSULIN NOS
     Route: 042
     Dates: start: 20241220, end: 20241225
  38. TRAMADOL HYDROCHLORIDE [Concomitant]
     Active Substance: TRAMADOL HYDROCHLORIDE
     Route: 048
     Dates: start: 20241210
  39. DEXAMETHASONE SODIUM PHOSPHATE [Concomitant]
     Active Substance: DEXAMETHASONE SODIUM PHOSPHATE
     Route: 042
     Dates: start: 20241211, end: 20241220
  40. METHOXYPHENAMINE [Concomitant]
     Active Substance: METHOXYPHENAMINE
     Route: 048
     Dates: start: 20241207, end: 20241207
  41. SUFENTANIL HYDROCHLORIDE [Concomitant]
     Active Substance: SUFENTANIL HYDROCHLORIDE
     Route: 040
     Dates: start: 20241211, end: 20241212
  42. ONDANSETRON HYDROCHLORIDE [Concomitant]
     Active Substance: ONDANSETRON HYDROCHLORIDE
     Route: 048
     Dates: start: 20241220, end: 20241220

REACTIONS (2)
  - Pathological fracture [Not Recovered/Not Resolved]
  - Bone density decreased [Not Recovered/Not Resolved]

NARRATIVE: CASE EVENT DATE: 20241223
